FAERS Safety Report 5577780-5 (Version None)
Quarter: 2007Q4

REPORT INFORMATION
  Report Type: 
  Country: None (occurrence: None)
  Receive Date: 20071231
  Receipt Date: 20071228
  Transmission Date: 20080405
  Serious: Yes (Other)
  Sender: FDA-Public Use
  Company Number: GB-BRISTOL-MYERS SQUIBB COMPANY-14026116

PATIENT
  Sex: Female

DRUGS (2)
  1. APROVEL [Suspect]
     Dosage: DOSE INCREASED TO 300MG/DAY ON 05-DEC-2007.
     Dates: start: 20071121
  2. VANCOMYCIN [Concomitant]

REACTIONS (1)
  - DRUG RASH WITH EOSINOPHILIA AND SYSTEMIC SYMPTOMS [None]
